FAERS Safety Report 4391790-5 (Version None)
Quarter: 2004Q3

REPORT INFORMATION
  Report Type: 
  Country: None (occurrence: None)
  Receive Date: 20040701
  Receipt Date: 20040621
  Transmission Date: 20050211
  Serious: Yes (Other)
  Sender: FDA-Public Use
  Company Number: HQWYE580422JUN04

PATIENT
  Age: 43 Year
  Sex: Female
  Weight: 64.47 kg

DRUGS (1)
  1. ALESSE [Suspect]
     Indication: MENSTRUATION IRREGULAR
     Dosage: 1 TABLET 1 X PER 1 DAY, ORAL
     Route: 048
     Dates: start: 20040501, end: 20040605

REACTIONS (5)
  - METRORRHAGIA [None]
  - OVARIAN CYST [None]
  - POST PROCEDURAL COMPLICATION [None]
  - POST PROCEDURAL PAIN [None]
  - TREATMENT NONCOMPLIANCE [None]
